FAERS Safety Report 21214989 (Version 1)
Quarter: 2022Q3

REPORT INFORMATION
  Report Type: Spontaneous
  Country: US (occurrence: None)
  Receive Date: 20220816
  Receipt Date: 20220816
  Transmission Date: 20221026
  Serious: No
  Sender: FDA-Public Use
  Company Number: US-ROCHE-3107544

PATIENT
  Sex: Male
  Weight: 75.3 kg

DRUGS (1)
  1. EVRYSDI [Suspect]
     Active Substance: RISDIPLAM
     Indication: Spinal muscular atrophy
     Dosage: LIQUID
     Route: 048
     Dates: start: 20210416

REACTIONS (2)
  - Weight decreased [Recovered/Resolved with Sequelae]
  - Musculoskeletal pain [Unknown]
